FAERS Safety Report 17375918 (Version 1)
Quarter: 2020Q1

REPORT INFORMATION
  Report Type: Spontaneous
  Country: DK (occurrence: DK)
  Receive Date: 20200206
  Receipt Date: 20200206
  Transmission Date: 20200409
  Serious: Yes (Other)
  Sender: FDA-Public Use
  Company Number: DK-TEVA-2020-DK-1181579

PATIENT
  Age: 76 Year
  Sex: Male

DRUGS (14)
  1. ATORVASTATIN [Concomitant]
     Active Substance: ATORVASTATIN
     Indication: HYPERCHOLESTEROLAEMIA
     Dosage: STRENGTH: 80 MG.
     Route: 048
     Dates: start: 20131122
  2. FERRO DURETTER [Concomitant]
     Active Substance: FERROUS SULFATE
     Indication: MINERAL SUPPLEMENTATION
     Dosage: STRENGTH: 100 MG.
     Route: 048
  3. METFORMIN [Concomitant]
     Active Substance: METFORMIN HYDROCHLORIDE
     Indication: TYPE 2 DIABETES MELLITUS
     Dosage: STRENGTH: 500 MG. 100 MG PER DAY
     Route: 048
     Dates: start: 20120410
  4. AMLODIPINE [Suspect]
     Active Substance: AMLODIPINE BESYLATE
     Indication: HYPERTENSION
     Dosage: STRENGTH: 5 MG (D. 9JAN2020), 10 MG (D. 10 JAN + 11JAN2020)
     Route: 048
     Dates: start: 20200109, end: 20200112
  5. SPIRIVA [Concomitant]
     Active Substance: TIOTROPIUM BROMIDE MONOHYDRATE
     Indication: LUNG DISORDER
     Dosage: STRENGTH: 18 MICROGRAMS.
     Route: 055
  6. BETOLVEX [Concomitant]
     Active Substance: CYANOCOBALAMIN
     Indication: VITAMIN B12 DEFICIENCY
     Dosage: STRENGTH: 1 MG.
     Route: 048
     Dates: start: 20140331
  7. FUROSEMIDE. [Concomitant]
     Active Substance: FUROSEMIDE
     Indication: HYPERTENSION
     Dosage: DOSAGE: 2 TAB MORNING, 1 TAB DINNER. STRENGTH: 40 MG.
     Route: 048
     Dates: start: 20120410
  8. BUVENTOL EASYHALER [Concomitant]
     Active Substance: ALBUTEROL SULFATE
     Indication: BRONCHOSPASM
     Dosage: DOSAGE: AS NEEDED. STRENGTH: 200 MICROGRAMS / DOSE
     Route: 055
     Dates: start: 20180423
  9. SYMBICORT FORTE TURBOHALER [Concomitant]
     Indication: CHRONIC OBSTRUCTIVE PULMONARY DISEASE
     Dosage: STRENGTH: 9 + 320 MICROGRAMS / DOSE, 2 DOSAGE FORMS
     Route: 055
     Dates: start: 20160106
  10. ACETYLSALICYLIC ACID [Concomitant]
     Active Substance: ASPIRIN
     Indication: ANTICOAGULANT THERAPY
     Dosage: STRENGTH: 75 MG.
     Route: 048
     Dates: start: 20140331
  11. NOVORAPID [Concomitant]
     Active Substance: INSULIN ASPART
     Indication: TYPE 2 DIABETES MELLITUS
     Dosage: DOSAGE: UNKNOWN. STRENGTH: 100 U / ML
  12. DEKRISTOL ^MIBE^ [Concomitant]
     Indication: PRODUCT USED FOR UNKNOWN INDICATION
     Dosage: DOSAGE: UNKNOWN. STRENGTH: UNKNOWN.
  13. CALCIUM OG D-VITAMIN [Concomitant]
     Indication: MINERAL SUPPLEMENTATION
     Dosage: DOSAGE: UNKNOWN. STRENGTH: UNKNOWN.
     Route: 048
  14. DOXAZOSIN [Concomitant]
     Active Substance: DOXAZOSIN MESYLATE
     Indication: HYPERTENSION
     Dosage: STRENGTH: 4 MG.8 MG PER DAY
     Route: 048
     Dates: start: 20141022

REACTIONS (2)
  - Oxygen saturation decreased [Recovering/Resolving]
  - Angioedema [Recovering/Resolving]

NARRATIVE: CASE EVENT DATE: 20200112
